FAERS Safety Report 6064800-7 (Version None)
Quarter: 2009Q1

REPORT INFORMATION
  Report Type: 
  Country: None (occurrence: None)
  Receive Date: 20090203
  Receipt Date: 20090203
  Transmission Date: 20090719
  Serious: Yes (Life-Threatening, Other)
  Sender: FDA-Public Use
  Company Number: None

PATIENT
  Age: 58 Year
  Sex: Male
  Weight: 55.3388 kg

DRUGS (2)
  1. HALDOL [Suspect]
     Indication: ALCOHOL INDUCED PERSISTING DEMENTIA
     Dates: start: 20090128, end: 20090129
  2. HALDOL [Suspect]
     Indication: ALCOHOL INDUCED PERSISTING DEMENTIA
     Dates: start: 20090129, end: 20090129

REACTIONS (10)
  - APALLIC SYNDROME [None]
  - APHASIA [None]
  - CONVULSION [None]
  - DYSTONIA [None]
  - FALL [None]
  - FEELING ABNORMAL [None]
  - FOAMING AT MOUTH [None]
  - NECK PAIN [None]
  - PYREXIA [None]
  - TRANSIENT ISCHAEMIC ATTACK [None]
